FAERS Safety Report 5106742-7 (Version None)
Quarter: 2006Q3

REPORT INFORMATION
  Report Type: 
  Country: None (occurrence: None)
  Receive Date: 20060731
  Receipt Date: 20050805
  Transmission Date: 20061208
  Serious: Yes (Hospitalization)
  Sender: FDA-Public Use
  Company Number: US-JNJFOC-20050802255

PATIENT
  Age: 65 Year
  Sex: Male

DRUGS (2)
  1. RISPERDAL [Suspect]
     Indication: MENTAL DISORDER
     Dosage: ORAL
     Route: 048
     Dates: start: 20050501, end: 20050803
  2. RISPERDAL [Suspect]
     Indication: MENTAL DISORDER
     Dosage: ORAL
     Route: 048
     Dates: start: 20050803

REACTIONS (2)
  - DYSPHAGIA [None]
  - PNEUMONIA [None]
